FAERS Safety Report 7934131-6 (Version None)
Quarter: 2011Q4

REPORT INFORMATION
  Report Type: 
  Country: None (occurrence: None)
  Receive Date: 20111122
  Receipt Date: 20111116
  Transmission Date: 20120403
  Serious: Yes (Hospitalization)
  Sender: FDA-Public Use
  Company Number: US-AMGEN-USASP2011060429

PATIENT
  Sex: Male

DRUGS (1)
  1. ENBREL [Suspect]
     Indication: ANKYLOSING SPONDYLITIS
     Dosage: 50 MG, QWK
     Dates: start: 20080101

REACTIONS (8)
  - LACERATION [None]
  - RHEUMATOID ARTHRITIS [None]
  - FALL [None]
  - DIARRHOEA [None]
  - PERIPHERAL EMBOLISM [None]
  - SEPTIC EMBOLUS [None]
  - INSOMNIA [None]
  - BLOOD COUNT ABNORMAL [None]
